FAERS Safety Report 5853156-8 (Version None)
Quarter: 2008Q3

REPORT INFORMATION
  Report Type: 
  Country: None (occurrence: None)
  Receive Date: 20080821
  Receipt Date: 20080819
  Transmission Date: 20090109
  Serious: Yes (Hospitalization)
  Sender: FDA-Public Use
  Company Number: EC-BOEHRINGER INGELHEIM GMBH, GERMANY-2008-BP-13075EB

PATIENT
  Age: 67 Year
  Sex: Female
  Weight: 54 kg

DRUGS (6)
  1. SPIRIVA [Suspect]
     Indication: CHRONIC OBSTRUCTIVE PULMONARY DISEASE
     Route: 055
     Dates: start: 20060101
  2. COMBIVENT [Suspect]
     Indication: CHRONIC OBSTRUCTIVE PULMONARY DISEASE
     Dosage: 0.52/3.01 MG
     Route: 055
     Dates: start: 20080811, end: 20080819
  3. CONVERSYL [Concomitant]
     Indication: HYPERTENSION
     Route: 048
     Dates: start: 20040101
  4. SERETIDE [Concomitant]
     Indication: CHRONIC OBSTRUCTIVE PULMONARY DISEASE
     Route: 055
     Dates: start: 20040101, end: 20080811
  5. WARFARINA [Concomitant]
  6. INFLAMMIDE [Concomitant]
     Route: 055
     Dates: start: 20080814

REACTIONS (3)
  - DRY MOUTH [None]
  - OEDEMA MOUTH [None]
  - PNEUMONIA [None]
